FAERS Safety Report 11030936 (Version 1)
Quarter: 2015Q2

REPORT INFORMATION
  Report Type: Spontaneous
  Country: ES (occurrence: None)
  Receive Date: 20150413
  Receipt Date: 20150413
  Transmission Date: 20150821
  Serious: Yes (Other)
  Sender: FDA-Public Use
  Company Number: ES-001117

PATIENT
  Age: 73 Year
  Sex: Female
  Weight: 68 kg

DRUGS (4)
  1. SONOVUE (SULPHUR HEXAFLUORIDE) [Suspect]
     Active Substance: SULFUR HEXAFLUORIDE
     Indication: STRESS
     Dosage: 0.5 ML TID, INTRAVENOUS (NOT OTHERWISE SPECIFIED)?
     Route: 042
     Dates: start: 20150219, end: 20150219
  2. DOBUTAMINE [Concomitant]
     Active Substance: DOBUTAMINE\DOBUTAMINE HYDROCHLORIDE
  3. SALINE WASHING (SODIUM CHLORIDE) [Concomitant]
  4. SONOVUE (SULPHUR HEXAFLUORIDE) [Suspect]
     Active Substance: SULFUR HEXAFLUORIDE
     Indication: ECHOCARDIOGRAM
     Dosage: 0.5 ML TID, INTRAVENOUS (NOT OTHERWISE SPECIFIED)?
     Route: 042
     Dates: start: 20150219, end: 20150219

REACTIONS (8)
  - Nodal rhythm [None]
  - Contrast media reaction [None]
  - Presyncope [None]
  - Malaise [None]
  - Heart rate increased [None]
  - Heart rate decreased [None]
  - Fatigue [None]
  - Nausea [None]

NARRATIVE: CASE EVENT DATE: 20150219
